FAERS Safety Report 11415489 (Version 1)
Quarter: 2015Q3

REPORT INFORMATION
  Report Type: Spontaneous
  Country: US (occurrence: US)
  Receive Date: 20150825
  Receipt Date: 20150825
  Transmission Date: 20151125
  Serious: No
  Sender: FDA-Public Use
  Company Number: US-MYLANLABS-2014M1000872

PATIENT
  Age: 67 Year
  Sex: Female
  Weight: 54.42 kg

DRUGS (26)
  1. NIZATIDINE CAPSULES, USP [Suspect]
     Active Substance: NIZATIDINE
     Indication: GASTROOESOPHAGEAL REFLUX DISEASE
     Dosage: 300 MG, BID
     Route: 048
  2. NIZATIDINE CAPSULES, USP [Suspect]
     Active Substance: NIZATIDINE
     Indication: DYSPEPSIA
  3. VENTOLIN [Concomitant]
     Active Substance: ALBUTEROL SULFATE
     Indication: ASTHMA
     Dosage: UNK, PRN (4 TIMES A DAY AS NEEDED)
  4. NEURONTIN [Concomitant]
     Active Substance: GABAPENTIN
     Dosage: 100 MG, AM
  5. LAMICTAL [Concomitant]
     Active Substance: LAMOTRIGINE
     Indication: BIPOLAR DISORDER
     Dosage: 300 MG, HS
  6. AXID                               /00867001/ [Concomitant]
     Indication: GASTROOESOPHAGEAL REFLUX DISEASE
  7. IMITREX [Concomitant]
     Active Substance: SUMATRIPTAN\SUMATRIPTAN SUCCINATE
     Indication: MIGRAINE
     Dosage: 25 MG, PRN
  8. NEURONTIN [Concomitant]
     Active Substance: GABAPENTIN
     Dosage: 300 MG, HS
  9. GAVISCON-L [Concomitant]
     Dosage: UNK, PRN
  10. GAVISCON-L [Concomitant]
     Indication: PAIN
  11. LEVOTHYROXINE. [Concomitant]
     Active Substance: LEVOTHYROXINE
     Indication: THYROID DISORDER
     Dosage: 25 ?G, QD BEFORE BREAKFAST
  12. XYZAL [Concomitant]
     Active Substance: LEVOCETIRIZINE DIHYDROCHLORIDE
     Indication: HYPERSENSITIVITY
     Dosage: 5 MG, QD
  13. OSCAL D [Concomitant]
     Active Substance: CALCIUM CARBONATE\CHOLECALCIFEROL
     Dosage: 1 TABLET , QD
  14. NEURONTIN [Concomitant]
     Active Substance: GABAPENTIN
     Indication: MIGRAINE
  15. VENTOLIN [Concomitant]
     Active Substance: ALBUTEROL SULFATE
     Indication: ASTHMA
     Dosage: 4 MG, BID
  16. OPTIVAR [Concomitant]
     Active Substance: AZELASTINE HYDROCHLORIDE
     Indication: HYPERSENSITIVITY
     Dosage: 1-2 DROPS IN BOTH EYES EVERY 12 HOURS AS NEEDED
  17. AXID                               /00867001/ [Concomitant]
     Indication: BARRETT^S OESOPHAGUS
  18. GAVISCON-L [Concomitant]
     Indication: GASTROOESOPHAGEAL REFLUX DISEASE
  19. VITAMIN D3 [Concomitant]
     Active Substance: CHOLECALCIFEROL
     Dosage: 1400 IU, UNK
  20. NASONEX [Concomitant]
     Active Substance: MOMETASONE FUROATE
     Indication: HYPERSENSITIVITY
     Dosage: 1 -2 SPRAYS EACH NOSTRIL, QD
     Route: 045
  21. MUCINEX [Concomitant]
     Active Substance: GUAIFENESIN
     Dosage: 600 MG, BID
  22. SINGULAIR [Concomitant]
     Active Substance: MONTELUKAST SODIUM
     Indication: ASTHMA
     Dosage: 10 MG, QD
  23. ZOLOFT [Concomitant]
     Active Substance: SERTRALINE HYDROCHLORIDE
     Indication: DEPRESSION
     Dosage: 150 MG, HS
  24. TOPAMAX [Concomitant]
     Active Substance: TOPIRAMATE
     Indication: BIPOLAR DISORDER
     Dosage: 100 MG, HS
  25. AXID                               /00867001/ [Concomitant]
     Dosage: 300 MG, BID
  26. GAVISCON-L [Concomitant]
     Indication: BARRETT^S OESOPHAGUS

REACTIONS (2)
  - Dyspepsia [Not Recovered/Not Resolved]
  - Drug effect delayed [Not Recovered/Not Resolved]

NARRATIVE: CASE EVENT DATE: 20140719
